FAERS Safety Report 20422808 (Version 2)
Quarter: 2024Q2

REPORT INFORMATION
  Report Type: Spontaneous
  Country: US (occurrence: None)
  Receive Date: 20220203
  Receipt Date: 20240610
  Transmission Date: 20240715
  Serious: No
  Sender: FDA-Public Use
  Company Number: 2022A056006

PATIENT
  Sex: Female

DRUGS (1)
  1. BYDUREON BCISE [Suspect]
     Active Substance: EXENATIDE
     Route: 058

REACTIONS (1)
  - Product storage error [Unknown]
